FAERS Safety Report 9263249 (Version 1)
Quarter: 2013Q2

REPORT INFORMATION
  Report Type: Spontaneous
  Country: GB (occurrence: GB)
  Receive Date: 20130430
  Receipt Date: 20130430
  Transmission Date: 20140414
  Serious: Yes (Other)
  Sender: FDA-Public Use
  Company Number: GB-JNJFOC-20130413926

PATIENT
  Age: 31 Year
  Sex: Female
  Weight: 73.02 kg

DRUGS (2)
  1. EVRA [Suspect]
     Indication: CONTRACEPTION
     Route: 062
     Dates: start: 20130131, end: 20130413
  2. VENLAFAXINE [Concomitant]
     Route: 065

REACTIONS (5)
  - Disturbance in attention [Unknown]
  - Apathy [Unknown]
  - Depression [Not Recovered/Not Resolved]
  - Depressed mood [Unknown]
  - Fatigue [Not Recovered/Not Resolved]
